FAERS Safety Report 4622030-7 (Version None)
Quarter: 2005Q1

REPORT INFORMATION
  Report Type: 
  Country: None (occurrence: None)
  Receive Date: 20050328
  Receipt Date: 20050318
  Transmission Date: 20050727
  Serious: Yes (Other)
  Sender: FDA-Public Use
  Company Number: 2005047189

PATIENT
  Age: 53 Year
  Sex: Female

DRUGS (2)
  1. LIPITOR [Suspect]
     Indication: BLOOD CHOLESTEROL INCREASED
     Dosage: 10 MG (10 MG, 1 IN 1 D), ORAL
     Route: 048
     Dates: start: 20040524, end: 20050216
  2. ANTI-DIABETICS (ANTI-DIABETICS) [Concomitant]

REACTIONS (9)
  - ANOREXIA [None]
  - BACK DISORDER [None]
  - DIFFICULTY IN WALKING [None]
  - INSOMNIA [None]
  - MUSCLE TIGHTNESS [None]
  - PAIN [None]
  - SENSORY LOSS [None]
  - TREMOR [None]
  - WEIGHT DECREASED [None]
